FAERS Safety Report 5474745-9 (Version None)
Quarter: 2007Q4

REPORT INFORMATION
  Report Type: 
  Country: None (occurrence: None)
  Receive Date: 20071002
  Receipt Date: 20070924
  Transmission Date: 20080405
  Serious: Yes (Hospitalization, Other)
  Sender: FDA-Public Use
  Company Number: A0651217A

PATIENT
  Sex: Male
  Weight: 90.9 kg

DRUGS (6)
  1. LAMICTAL [Suspect]
     Indication: BIPOLAR DISORDER
     Route: 048
     Dates: start: 20061025, end: 20070221
  2. LAMICTAL [Suspect]
     Indication: DRUG USE FOR UNKNOWN INDICATION
     Route: 048
     Dates: start: 20050101, end: 20050101
  3. DEPAKOTE ER [Concomitant]
     Indication: MANIA
     Route: 048
     Dates: start: 20061129, end: 20070124
  4. RISPERDAL [Concomitant]
     Indication: MANIA
     Route: 048
     Dates: start: 20050831
  5. COGENTIN [Concomitant]
     Route: 048
     Dates: start: 20060421
  6. DEPAKOTE [Concomitant]
     Indication: DRUG USE FOR UNKNOWN INDICATION
     Dates: start: 20050101

REACTIONS (8)
  - ADVERSE DRUG REACTION [None]
  - ADVERSE EVENT [None]
  - ALOPECIA [None]
  - ERYTHEMA [None]
  - HAIR COLOUR CHANGES [None]
  - MANIA [None]
  - PRURITUS [None]
  - RASH GENERALISED [None]
